FAERS Safety Report 7110376-2 (Version None)
Quarter: 2010Q4

REPORT INFORMATION
  Report Type: 
  Country: None (occurrence: None)
  Receive Date: 20101118
  Receipt Date: 20101013
  Transmission Date: 20110411
  Serious: Yes (Life-Threatening, Hospitalization)
  Sender: FDA-Public Use
  Company Number: NL-AMGEN-NLDSP2010000141

PATIENT

DRUGS (3)
  1. ENBREL [Suspect]
     Indication: PSORIASIS
     Dosage: UNK
  2. ENBREL [Suspect]
     Dosage: 50 MG 1 TIME/WEEK FROM UNK DATE TO 19-MAY-2010. FROM 20-MAY-2010 TO 12-OCT-2010  50 MG 1 TIMES/WEEK
     Route: 058
  3. DOVOBET [Concomitant]
     Indication: PSORIASIS

REACTIONS (1)
  - ACUTE MYOCARDIAL INFARCTION [None]
